APPROVED DRUG PRODUCT: DESOXIMETASONE
Active Ingredient: DESOXIMETASONE
Strength: 0.05%
Dosage Form/Route: GEL;TOPICAL
Application: A204675 | Product #001 | TE Code: AB
Applicant: RISING PHARMA HOLDINGS INC
Approved: Aug 12, 2016 | RLD: No | RS: No | Type: RX